FAERS Safety Report 13781269 (Version 1)
Quarter: 2017Q3

REPORT INFORMATION
  Report Type: Spontaneous
  Country: US (occurrence: US)
  Receive Date: 20170721
  Receipt Date: 20170721
  Transmission Date: 20171127
  Serious: Yes (Hospitalization)
  Sender: FDA-Public Use
  Company Number: None

PATIENT
  Age: 89 Year
  Sex: Male

DRUGS (13)
  1. PREDNISONE. [Concomitant]
     Active Substance: PREDNISONE
  2. DOXAZOSIN [Concomitant]
     Active Substance: DOXAZOSIN\DOXAZOSIN MESYLATE
  3. ARANESP [Suspect]
     Active Substance: DARBEPOETIN ALFA
     Indication: CHRONIC KIDNEY DISEASE
     Route: 058
     Dates: start: 20170310
  4. ATENOLOL. [Concomitant]
     Active Substance: ATENOLOL
  5. FEROSUL [Concomitant]
  6. FINASTERIDE. [Concomitant]
     Active Substance: FINASTERIDE
  7. ALLOPURINOL. [Concomitant]
     Active Substance: ALLOPURINOL
  8. VITAMIN D [Concomitant]
     Active Substance: CHOLECALCIFEROL
  9. ARANESP [Suspect]
     Active Substance: DARBEPOETIN ALFA
     Indication: ANAEMIA
     Route: 058
     Dates: start: 20170310
  10. DONEPEZIL. [Concomitant]
     Active Substance: DONEPEZIL
  11. FUROSEMIDE. [Concomitant]
     Active Substance: FUROSEMIDE
  12. FOLIC ACID. [Concomitant]
     Active Substance: FOLIC ACID
  13. LISINOPRIL. [Concomitant]
     Active Substance: LISINOPRIL

REACTIONS (1)
  - Hospitalisation [None]

NARRATIVE: CASE EVENT DATE: 20170721
